FAERS Safety Report 5938485-1 (Version None)
Quarter: 2008Q4

REPORT INFORMATION
  Report Type: 
  Country: None (occurrence: None)
  Receive Date: 20081103
  Receipt Date: 20081023
  Transmission Date: 20090506
  Serious: Yes (Hospitalization)
  Sender: FDA-Public Use
  Company Number: US-AMGEN-QUU315165

PATIENT
  Age: 76 Year
  Sex: Male

DRUGS (2)
  1. NEULASTA [Suspect]
     Indication: CHEMOTHERAPY
     Route: 065
     Dates: start: 20081017
  2. ALIMTA [Concomitant]
     Dates: start: 20081016, end: 20081016

REACTIONS (1)
  - THERAPEUTIC RESPONSE DECREASED [None]
